FAERS Safety Report 19530136 (Version 1)
Quarter: 2021Q3

REPORT INFORMATION
  Report Type: Spontaneous
  Country: PE (occurrence: PE)
  Receive Date: 20210713
  Receipt Date: 20210713
  Transmission Date: 20211014
  Serious: Yes (Death, Life-Threatening, Hospitalization, Other)
  Sender: FDA-Public Use
  Company Number: PE-ACCORD-231518

PATIENT
  Age: 39 Year
  Sex: Female

DRUGS (1)
  1. CLOZAPINE. [Suspect]
     Active Substance: CLOZAPINE
     Indication: SCHIZOPHRENIA
     Dosage: ALSO 150 MG DAILY

REACTIONS (10)
  - Upper gastrointestinal haemorrhage [Fatal]
  - Chronic gastritis [Fatal]
  - Gastric mucosa erythema [Fatal]
  - Intestinal obstruction [Fatal]
  - Encephalopathy [Fatal]
  - Drug-induced liver injury [Fatal]
  - Hypoglycaemia [Fatal]
  - Portal hypertensive gastropathy [Fatal]
  - Duodenogastric reflux [Fatal]
  - Multiple organ dysfunction syndrome [Fatal]
